FAERS Safety Report 4892328-6 (Version None)
Quarter: 2006Q1

REPORT INFORMATION
  Report Type: 
  Country: None (occurrence: None)
  Receive Date: 20060123
  Receipt Date: 20060123
  Transmission Date: 20060701
  Serious: Yes (Other)
  Sender: FDA-Public Use
  Company Number: None

PATIENT

DRUGS (1)
  1. LEVAQUIN [Suspect]
     Dosage: IV
     Route: 042
     Dates: start: 20030331

REACTIONS (2)
  - INFUSION RELATED REACTION [None]
  - PRURITUS [None]
